FAERS Safety Report 8775810 (Version 2)
Quarter: 2012Q4

REPORT INFORMATION
  Report Type: 
  Country: GB (occurrence: GB)
  Receive Date: 20120910
  Receipt Date: 20120913
  Transmission Date: 20130627
  Serious: Yes (Other)
  Sender: FDA-Public Use
  Company Number: GB-PERRIGO-12GB007553

PATIENT
  Age: 15 Year
  Sex: Female

DRUGS (4)
  1. CETIRIZINE HYDROCHLORIDE 16208/0066 10 MG [Suspect]
     Indication: SEASONAL ALLERGY
     Dosage: UNK
     Route: 048
  2. ABILIFY [Suspect]
     Indication: BIPOLAR DISORDER
     Dosage: UNK
     Route: 065
  3. NEXPLANON [Suspect]
     Indication: CONTRACEPTION
     Dosage: UNK
     Route: 058
  4. LAMICTAL [Suspect]
     Indication: BIPOLAR DISORDER
     Dosage: 50 mg, tid
     Route: 048

REACTIONS (5)
  - Abortion spontaneous [Unknown]
  - Pregnancy with implant contraceptive [Recovered/Resolved]
  - Drug interaction [Unknown]
  - Metrorrhagia [Unknown]
  - Exposure during pregnancy [Unknown]
